FAERS Safety Report 5947547-4 (Version None)
Quarter: 2008Q4

REPORT INFORMATION
  Report Type: 
  Country: None (occurrence: None)
  Receive Date: 20081110
  Receipt Date: 20081103
  Transmission Date: 20090506
  Serious: Yes (Hospitalization)
  Sender: FDA-Public Use
  Company Number: PHBS2008FR06218

PATIENT
  Age: 62 Year
  Sex: Male

DRUGS (2)
  1. CYCLOSPORINE [Suspect]
     Indication: HEART TRANSPLANT
  2. SIROLIMUS [Suspect]
     Indication: RENAL TRANSPLANT

REACTIONS (10)
  - BASAL CELL CARCINOMA [None]
  - BRONCHOSCOPY ABNORMAL [None]
  - COUGH [None]
  - DYSPNOEA [None]
  - LUNG SQUAMOUS CELL CARCINOMA STAGE II [None]
  - PNEUMONECTOMY [None]
  - PULMONARY MASS [None]
  - RENAL FAILURE CHRONIC [None]
  - RENAL TRANSPLANT [None]
  - SQUAMOUS CELL CARCINOMA OF SKIN [None]
